FAERS Safety Report 11245098 (Version 1)
Quarter: 2015Q3

REPORT INFORMATION
  Report Type: Spontaneous
  Country: PT (occurrence: PT)
  Receive Date: 20150707
  Receipt Date: 20150707
  Transmission Date: 20151125
  Serious: Yes (Hospitalization, Other)
  Sender: FDA-Public Use
  Company Number: PT-MEDA-2015060065

PATIENT
  Age: 23 Year
  Sex: Male

DRUGS (4)
  1. 5-AMINOSALICYLATE [Suspect]
     Active Substance: MESALAMINE
     Indication: COLITIS ULCERATIVE
     Dates: start: 2010
  2. 5-AMINOSALICYLATE [Suspect]
     Active Substance: MESALAMINE
     Indication: COLITIS ULCERATIVE
  3. 5-AMINOSALICYLATE [Suspect]
     Active Substance: MESALAMINE
     Indication: COLITIS ULCERATIVE
  4. 5-AMINOSALICYLATE [Suspect]
     Active Substance: MESALAMINE
     Indication: COLITIS ULCERATIVE

REACTIONS (3)
  - Tubulointerstitial nephritis [Recovered/Resolved with Sequelae]
  - Hyperparathyroidism [None]
  - Anaemia [None]
